FAERS Safety Report 20410217 (Version 2)
Quarter: 2022Q1

REPORT INFORMATION
  Report Type: Spontaneous
  Country: US (occurrence: US)
  Receive Date: 20220201
  Receipt Date: 20220208
  Transmission Date: 20220423
  Serious: No
  Sender: FDA-Public Use
  Company Number: US-SA-SAC20220128001485

PATIENT
  Age: 10 Year
  Sex: Female

DRUGS (1)
  1. DUPIXENT [Suspect]
     Active Substance: DUPILUMAB
     Indication: Dermatitis atopic
     Dosage: 200 MG,QOW
     Route: 058
     Dates: end: 20200511

REACTIONS (6)
  - Product dose omission issue [Unknown]
  - Eczema [Unknown]
  - Pruritus [Unknown]
  - Molluscum contagiosum [Unknown]
  - Skin infection [Unknown]
  - Pain of skin [Unknown]

NARRATIVE: CASE EVENT DATE: 20200511
